FAERS Safety Report 5339421-1 (Version None)
Quarter: 2007Q2

REPORT INFORMATION
  Report Type: 
  Country: None (occurrence: None)
  Receive Date: 20070404
  Receipt Date: 20060921
  Transmission Date: 20071010
  Serious: Yes (Other)
  Sender: FDA-Public Use
  Company Number: 2006085407

PATIENT
  Age: 45 Year
  Sex: Male

DRUGS (11)
  1. GEODON [Suspect]
     Indication: BIPOLAR DISORDER
     Dosage: 80 MG (40 MG, 2 IN 1 D)
     Dates: start: 20060615
  2. RISPERIDONE [Concomitant]
  3. TRAZODONE HCL [Concomitant]
  4. METFORMIN HCL [Concomitant]
  5. ARTES (CLOFIBRATE) [Concomitant]
  6. TOPROL-XL [Concomitant]
  7. HYDROCHLOROTHIAZIDE [Concomitant]
  8. PRILOSEC [Concomitant]
  9. INSULIN (INSULIN) [Concomitant]
  10. ASPIRIN [Concomitant]
  11. MULTIVITAMIN [Concomitant]

REACTIONS (2)
  - DRUG INEFFECTIVE [None]
  - ELECTROCARDIOGRAM QT CORRECTED INTERVAL PROLONGED [None]
